FAERS Safety Report 9812095 (Version 1)
Quarter: 2014Q1

REPORT INFORMATION
  Report Type: Spontaneous
  Country: HU (occurrence: HU)
  Receive Date: 20140111
  Receipt Date: 20140111
  Transmission Date: 20141002
  Serious: Yes (Hospitalization)
  Sender: FDA-Public Use
  Company Number: US-ASTRAZENECA-2014SE01269

PATIENT
  Age: 3 Month
  Sex: Male

DRUGS (1)
  1. SYNAGIS [Suspect]
     Indication: ANTIVIRAL PROPHYLAXIS
     Dosage: MONTHLY, SYNAGIS WAS GIVEN BASED ON THE BODY WEIGHT
     Route: 030
     Dates: start: 20131204

REACTIONS (4)
  - Urinary tract infection [Not Recovered/Not Resolved]
  - Genital erythema [Not Recovered/Not Resolved]
  - Crying [Not Recovered/Not Resolved]
  - Erythema [Not Recovered/Not Resolved]
